FAERS Safety Report 13230750 (Version 1)
Quarter: 2017Q1

REPORT INFORMATION
  Report Type: Report from Study
  Country: GB (occurrence: GB)
  Receive Date: 20170214
  Receipt Date: 20170214
  Transmission Date: 20170428
  Serious: Yes (Hospitalization)
  Sender: FDA-Public Use
  Company Number: GB-PFIZER INC-1584816

PATIENT
  Age: 7 Year
  Sex: Male
  Weight: 22 kg

DRUGS (15)
  1. PARACETAMOL [Concomitant]
     Active Substance: ACETAMINOPHEN
     Dosage: 330 MG, FREQ: 4 DAY; INTERVAL: 1
     Route: 048
     Dates: start: 20120916, end: 20120917
  2. DOXORUBICIN [Suspect]
     Active Substance: DOXORUBICIN
     Indication: NEOPLASM MALIGNANT
     Dosage: 26 MG, FREQ: 1 DAY; INTERVAL: 1
     Route: 042
     Dates: start: 20120704
  3. PARACETAMOL [Concomitant]
     Active Substance: ACETAMINOPHEN
     Dosage: 300 MG, UNK
     Dates: start: 20120826
  4. MOVICOL [Concomitant]
     Active Substance: POLYETHYLENE GLYCOL 3350\POTASSIUM CHLORIDE\SODIUM BICARBONATE\SODIUM CHLORIDE
     Dosage: UNK
     Dates: start: 20120701, end: 20120709
  5. PARACETAMOL [Concomitant]
     Active Substance: ACETAMINOPHEN
     Dosage: 360 MG, UNK
     Dates: start: 20120707, end: 20120707
  6. ONDANSETRON [Concomitant]
     Active Substance: ONDANSETRON
     Dosage: 4 MG, UNK
     Dates: start: 20120714, end: 20120720
  7. PARACETAMOL [Concomitant]
     Active Substance: ACETAMINOPHEN
     Dosage: 330 MG, UNK
     Route: 048
     Dates: start: 20120714, end: 20120714
  8. PARACETAMOL [Concomitant]
     Active Substance: ACETAMINOPHEN
     Dosage: 300 MG, UNK
     Dates: start: 20120715, end: 20120715
  9. IFOSFAMIDE. [Suspect]
     Active Substance: IFOSFAMIDE
     Indication: NEOPLASM MALIGNANT
     Dosage: 2550 MG, UNK
     Route: 042
     Dates: start: 20120704
  10. MESNA. [Suspect]
     Active Substance: MESNA
     Indication: NEOPLASM MALIGNANT
     Dosage: 3060 MG, DAY 2
     Route: 042
     Dates: start: 20120704
  11. DOCUSATE [Concomitant]
     Active Substance: DOCUSATE
     Dosage: 25 MG, UNK
     Dates: start: 20120703
  12. VINCRISTINE SULFATE. [Suspect]
     Active Substance: VINCRISTINE SULFATE
     Indication: NEOPLASM MALIGNANT
     Dosage: 1.3 MG, FREQ: 1 DAY; INTERVAL: 1
     Route: 042
     Dates: start: 20120704
  13. ACTINOMYCIN D [Suspect]
     Active Substance: DACTINOMYCIN
     Indication: NEOPLASM MALIGNANT
     Dosage: 1.3 MG, FREQ: 1 DAY; INTERVAL: 1
     Route: 042
     Dates: start: 20120704
  14. MESNA. [Suspect]
     Active Substance: MESNA
     Dosage: 3570 MG, DAY 1
     Route: 042
     Dates: start: 20120704
  15. COTRIMOXAZOLE [Concomitant]
     Active Substance: SULFAMETHOXAZOLE\TRIMETHOPRIM
     Dosage: 360 MG, 2 SACHETS
     Dates: start: 20120707

REACTIONS (2)
  - Vomiting [Recovered/Resolved]
  - Febrile neutropenia [Recovered/Resolved]

NARRATIVE: CASE EVENT DATE: 20120705
